FAERS Safety Report 4293903-2 (Version None)
Quarter: 2004Q1

REPORT INFORMATION
  Report Type: 
  Country: None (occurrence: None)
  Receive Date: 20040211
  Receipt Date: 20040123
  Transmission Date: 20041129
  Serious: Yes (Hospitalization, Other)
  Sender: FDA-Public Use
  Company Number: USA040156703

PATIENT
  Age: 84 Year
  Sex: Male

DRUGS (9)
  1. FORTEO [Suspect]
     Indication: OSTEOPOROSIS
     Dates: start: 20030601, end: 20031101
  2. FUROSEMIDE [Concomitant]
  3. VASOTEC [Concomitant]
  4. LIPITOR [Concomitant]
  5. LEVOTHYROXINE SODIUM [Concomitant]
  6. CORDARONE [Concomitant]
  7. ACETYLSALICYLIC ACID SRT [Concomitant]
  8. LORCET-HD [Concomitant]
  9. COUMADIN [Concomitant]

REACTIONS (2)
  - CALCULUS URINARY [None]
  - RENAL PAPILLARY NECROSIS [None]
